FAERS Safety Report 4702660-4 (Version None)
Quarter: 2005Q2

REPORT INFORMATION
  Report Type: 
  Country: None (occurrence: None)
  Receive Date: 20050629
  Receipt Date: 20041005
  Transmission Date: 20051028
  Serious: No
  Sender: FDA-Public Use
  Company Number: IMP_0823_2004

PATIENT
  Sex: Male

DRUGS (2)
  1. ZYBAN [Suspect]
     Route: 048
     Dates: end: 20040801
  2. BUPROPION HYDROCHLORIDE [Suspect]
     Dosage: 150MG PER DAY
     Route: 048
     Dates: start: 20040801

REACTIONS (1)
  - BLOOD PRESSURE INCREASED [None]
